FAERS Safety Report 6314811-9 (Version None)
Quarter: 2009Q3

REPORT INFORMATION
  Report Type: 
  Country: None (occurrence: None)
  Receive Date: 20090817
  Receipt Date: 20090817
  Transmission Date: 20100115
  Serious: Yes (Other)
  Sender: FDA-Public Use
  Company Number: None

PATIENT
  Age: 38 Year
  Sex: Male
  Weight: 91.173 kg

DRUGS (1)
  1. CRESTOR [Suspect]
     Indication: BLOOD CHOLESTEROL INCREASED
     Dosage: 10MG QD PO
     Route: 048
     Dates: start: 20081001, end: 20090803

REACTIONS (6)
  - ASTHENIA [None]
  - CHILLS [None]
  - CHROMATURIA [None]
  - DECREASED ACTIVITY [None]
  - MUSCULAR WEAKNESS [None]
  - PAIN [None]
